FAERS Safety Report 26169205 (Version 1)
Quarter: 2025Q4

REPORT INFORMATION
  Report Type: Spontaneous
  Country: GB (occurrence: GB)
  Receive Date: 20251217
  Receipt Date: 20251217
  Transmission Date: 20260118
  Serious: Yes (Hospitalization, Other)
  Sender: MYLAN
  Company Number: GB-MYLANLABS-2025M1106771

PATIENT
  Sex: Female

DRUGS (1)
  1. CLOZARIL [Suspect]
     Active Substance: CLOZAPINE
     Indication: Schizophrenia
     Dosage: UNK
     Route: 061

REACTIONS (7)
  - Emotional distress [Unknown]
  - Hallucination, visual [Unknown]
  - Malaise [Unknown]
  - Paranoia [Unknown]
  - Seizure [Unknown]
  - Agitation [Unknown]
  - Hypophagia [Unknown]
